FAERS Safety Report 9427332 (Version 1)
Quarter: 2013Q3

REPORT INFORMATION
  Report Type: Spontaneous
  Country: FR (occurrence: FR)
  Receive Date: 20130730
  Receipt Date: 20130730
  Transmission Date: 20140515
  Serious: Yes (Other)
  Sender: FDA-Public Use
  Company Number: FR-AMGEN-FRASP2013052727

PATIENT
  Age: 67 Year
  Sex: Female

DRUGS (4)
  1. NEULASTA [Suspect]
     Indication: PRODUCT USED FOR UNKNOWN INDICATION
     Dosage: 6 MG, 1 CYCLE
     Route: 058
     Dates: start: 20121104, end: 20121104
  2. CISPLATINE [Concomitant]
     Indication: METASTATIC BRONCHIAL CARCINOMA
     Dosage: 75 MG/KG, UNK
     Route: 042
     Dates: start: 20121031, end: 20121102
  3. ETOPOSIDE [Concomitant]
     Indication: METASTATIC BRONCHIAL CARCINOMA
     Dosage: 100 MG/KG, UNK
     Route: 042
     Dates: start: 20121031, end: 20121102
  4. SOLUPRED                           /00016201/ [Concomitant]
     Dosage: 100 MG, 1 DAY
     Route: 048
     Dates: start: 201207, end: 201304

REACTIONS (3)
  - Pain [Not Recovered/Not Resolved]
  - Malaise [Not Recovered/Not Resolved]
  - Fall [Not Recovered/Not Resolved]
